FAERS Safety Report 21230681 (Version 2)
Quarter: 2022Q4

REPORT INFORMATION
  Report Type: Spontaneous
  Country: US (occurrence: US)
  Receive Date: 20220819
  Receipt Date: 20221210
  Transmission Date: 20230112
  Serious: No
  Sender: FDA-Public Use
  Company Number: US-BRISTOL-MYERS SQUIBB COMPANY-2022-092607

PATIENT
  Age: 70 Year
  Sex: Male

DRUGS (1)
  1. OPDUALAG [Suspect]
     Active Substance: NIVOLUMAB\RELATLIMAB-RMBW
     Indication: Malignant melanoma
     Dosage: DOSE: 480MG NIVOLUMAB, 160MG RELATLIMAB,  FREQUENCY: EVERY 28 DAYS
     Route: 042

REACTIONS (1)
  - Giant cell arteritis [Unknown]
